FAERS Safety Report 21719549 (Version 1)
Quarter: 2022Q4

REPORT INFORMATION
  Report Type: Spontaneous
  Country: US (occurrence: US)
  Receive Date: 20221213
  Receipt Date: 20221213
  Transmission Date: 20230113
  Serious: No
  Sender: FDA-Public Use
  Company Number: MIQ-06232022-2666

PATIENT
  Sex: Female

DRUGS (4)
  1. IVERMECTIN [Suspect]
     Active Substance: IVERMECTIN
     Indication: Rosacea
     Dosage: UNK, ONCE, EVERY SIX MONTHS
     Route: 048
  2. IVERMECTIN [Suspect]
     Active Substance: IVERMECTIN
     Dosage: 3 MG
     Route: 048
  3. IVERMECTIN [Suspect]
     Active Substance: IVERMECTIN
     Dosage: 3 MG
     Route: 048
  4. IVERMECTIN [Suspect]
     Active Substance: IVERMECTIN
     Dosage: UNK
     Route: 065

REACTIONS (2)
  - Drug ineffective for unapproved indication [Unknown]
  - Drug effective for unapproved indication [Unknown]
